FAERS Safety Report 7558020-4 (Version None)
Quarter: 2011Q2

REPORT INFORMATION
  Report Type: 
  Country: None (occurrence: None)
  Receive Date: 20110620
  Receipt Date: 20110606
  Transmission Date: 20111010
  Serious: Yes (Other)
  Sender: FDA-Public Use
  Company Number: PHHY2011US52856

PATIENT
  Age: 70 Year
  Sex: Male

DRUGS (4)
  1. SIMVASTATIN [Concomitant]
  2. LISINOPRIL [Concomitant]
  3. HYDRALAZINE HCL [Suspect]
     Dosage: 100 MG, BID
  4. ASPIRIN [Concomitant]

REACTIONS (10)
  - MICROSCOPIC POLYANGIITIS [None]
  - HYPOXIA [None]
  - RENAL FAILURE ACUTE [None]
  - DEAFNESS [None]
  - SJOGREN'S SYNDROME [None]
  - WEIGHT DECREASED [None]
  - EPISCLERITIS [None]
  - GLOMERULONEPHRITIS RAPIDLY PROGRESSIVE [None]
  - PULMONARY ALVEOLAR HAEMORRHAGE [None]
  - ANAEMIA [None]
